FAERS Safety Report 5265689-6 (Version None)
Quarter: 2007Q1

REPORT INFORMATION
  Report Type: 
  Country: None (occurrence: None)
  Receive Date: 20061213
  Receipt Date: 20040308
  Transmission Date: 20070707
  Serious: Yes (Other)
  Sender: FDA-Public Use
  Company Number: 2004UW04281

PATIENT
  Sex: 0

DRUGS (1)
  1. IRESSA [Suspect]
     Dosage: 250 MG PO
     Route: 048

REACTIONS (5)
  - CONSTIPATION [None]
  - DIARRHOEA [None]
  - LIP EXFOLIATION [None]
  - RASH [None]
  - STOMATITIS [None]
